FAERS Safety Report 5457861-7 (Version None)
Quarter: 2007Q3

REPORT INFORMATION
  Report Type: 
  Country: None (occurrence: None)
  Receive Date: 20070918
  Receipt Date: 20070906
  Transmission Date: 20080115
  Serious: Yes (Other)
  Sender: FDA-Public Use
  Company Number: GB-PFIZER INC-2007075867

PATIENT
  Age: 62 Year
  Sex: Female
  Weight: 84 kg

DRUGS (7)
  1. CHAMPIX [Suspect]
     Indication: SMOKING CESSATION THERAPY
     Route: 048
     Dates: start: 20070727, end: 20070817
  2. ASPIRIN [Concomitant]
     Route: 048
  3. LISINOPRIL [Concomitant]
     Route: 048
  4. METFORMIN HCL [Concomitant]
     Route: 048
  5. NITRAZEPAM [Concomitant]
     Route: 048
  6. NOVOMIX [Concomitant]
     Route: 058
  7. SIMVASTATIN [Concomitant]
     Route: 048

REACTIONS (4)
  - BLOOD GLUCOSE INCREASED [None]
  - COUGH [None]
  - INSOMNIA [None]
  - NAUSEA [None]
